FAERS Safety Report 16086549 (Version 2)
Quarter: 2019Q1

REPORT INFORMATION
  Report Type: Report from Study
  Country: US (occurrence: US)
  Receive Date: 20190318
  Receipt Date: 20190325
  Transmission Date: 20190418
  Serious: Yes (Hospitalization, Other)
  Sender: FDA-Public Use
  Company Number: US-GILEAD-2019-0396897

PATIENT
  Age: 66 Year
  Sex: Male

DRUGS (1)
  1. RANOLAZINE. [Suspect]
     Active Substance: RANOLAZINE
     Indication: ANGINA PECTORIS
     Dosage: 1000 MG, BID
     Route: 048

REACTIONS (4)
  - Internal haemorrhage [Recovered/Resolved]
  - Cardiac failure [Not Recovered/Not Resolved]
  - Epistaxis [Recovered/Resolved]
  - Blood disorder [Unknown]

NARRATIVE: CASE EVENT DATE: 20190309
